FAERS Safety Report 7635645-9 (Version None)
Quarter: 2011Q3

REPORT INFORMATION
  Report Type: 
  Country: None (occurrence: None)
  Receive Date: 20110726
  Receipt Date: 20110718
  Transmission Date: 20111222
  Serious: Yes (Hospitalization)
  Sender: FDA-Public Use
  Company Number: PHHY2011FR65680

PATIENT
  Age: 29 Year
  Sex: Female

DRUGS (3)
  1. METHYLENEDIOXYMETHAMPHETAMINE [Concomitant]
     Dosage: UNK UKN, UNK
  2. RITALIN [Suspect]
     Dosage: 10 MG, QD
     Route: 042
  3. LSD [Concomitant]
     Dosage: UNK UKN, UNK

REACTIONS (2)
  - DRUG DEPENDENCE [None]
  - INTENTIONAL DRUG MISUSE [None]
